FAERS Safety Report 23755942 (Version 2)
Quarter: 2025Q2

REPORT INFORMATION
  Report Type: Spontaneous
  Country: US (occurrence: US)
  Receive Date: 20240418
  Receipt Date: 20250509
  Transmission Date: 20250717
  Serious: Yes (Other)
  Sender: UCB
  Company Number: US-UCBSA-2024017491

PATIENT
  Age: 64 Year
  Sex: Female

DRUGS (1)
  1. CERTOLIZUMAB PEGOL [Suspect]
     Active Substance: CERTOLIZUMAB PEGOL
     Indication: Rheumatoid arthritis
     Dosage: 400 MILLIGRAM, EV 4 WEEKS, INJECTION
     Route: 058

REACTIONS (2)
  - Disseminated tuberculosis [Unknown]
  - Lymphadenopathy [Unknown]
